FAERS Safety Report 18003402 (Version 3)
Quarter: 2020Q3

REPORT INFORMATION
  Report Type: Spontaneous
  Country: US (occurrence: US)
  Receive Date: 20200710
  Receipt Date: 20200715
  Transmission Date: 20201103
  Serious: Yes (Other)
  Sender: FDA-Public Use
  Company Number: US-JNJFOC-20200706123

PATIENT
  Age: 94 Year
  Sex: Female
  Weight: 66.74 kg

DRUGS (1)
  1. TYLENOL 8 HR ARTHRITIS PAIN [Suspect]
     Active Substance: ACETAMINOPHEN
     Indication: ARTHRITIS
     Dosage: 2 AT A TIME BUT MOST OF THE TIME I TOOK 1 AT MORNING AND 1 AT NIGHT TWICE A DAY FOR A COUPLE OF DAYS
     Route: 048
     Dates: start: 202006

REACTIONS (4)
  - Haemorrhage [Recovered/Resolved]
  - Pruritus [Recovered/Resolved]
  - Faeces discoloured [Not Recovered/Not Resolved]
  - Inappropriate schedule of product administration [Recovered/Resolved]

NARRATIVE: CASE EVENT DATE: 202006
